FAERS Safety Report 8917649 (Version 1)
Quarter: 2012Q4

REPORT INFORMATION
  Report Type: 
  Country: US (occurrence: US)
  Receive Date: 20121120
  Receipt Date: 20121120
  Transmission Date: 20130627
  Serious: No
  Sender: FDA-Public Use
  Company Number: US-VERTEX PHARMACEUTICAL INC.-2012-024776

PATIENT
  Age: 59 Year
  Sex: Male
  Weight: 100 kg

DRUGS (5)
  1. VX-950 (TELAPREVIR) [Suspect]
     Indication: HEPATITIS C
     Dosage: 750 mg, tid
     Route: 048
     Dates: start: 20121109
  2. RIBAVIRIN [Concomitant]
     Indication: HEPATITIS C
     Dosage: 3 DF, bid
     Route: 048
     Dates: start: 20121109
  3. PEGASYS PROCLICK [Concomitant]
     Indication: HEPATITIS C
     Dosage: 180 ?g, UNK
     Route: 058
     Dates: start: 20121109
  4. MELATONIN [Concomitant]
     Indication: INSOMNIA
  5. METOPROLOL [Concomitant]
     Indication: BLOOD PRESSURE
     Dosage: 50 mg, qd
     Route: 048

REACTIONS (1)
  - Pruritus [Not Recovered/Not Resolved]
